FAERS Safety Report 8894266 (Version 1)
Quarter: 2012Q4

REPORT INFORMATION
  Report Type: Report from Study
  Country: DE (occurrence: DE)
  Receive Date: 20121108
  Receipt Date: 20121108
  Transmission Date: 20130627
  Serious: Yes (Hospitalization)
  Sender: FDA-Public Use
  Company Number: DE-SANOFI-AVENTIS-2012SA073624

PATIENT
  Age: 72 Year
  Sex: Male
  Weight: 82 kg

DRUGS (25)
  1. OXALIPLATIN [Suspect]
     Indication: MALIGNANT NEOPLASM OF COLON
     Route: 065
     Dates: start: 20120905, end: 20121008
  2. OXALIPLATIN [Suspect]
     Indication: MALIGNANT NEOPLASM OF RECTUM
     Route: 065
     Dates: start: 20120905, end: 20121008
  3. BEVACIZUMAB [Suspect]
     Indication: MALIGNANT NEOPLASM OF COLON
     Route: 042
     Dates: start: 20120905, end: 20121008
  4. BEVACIZUMAB [Suspect]
     Indication: MALIGNANT NEOPLASM OF RECTUM
     Route: 042
     Dates: start: 20120905, end: 20121008
  5. FOLINIC ACID [Suspect]
     Indication: MALIGNANT NEOPLASM OF COLON
     Dosage: form- infusion
     Route: 042
     Dates: start: 20120905, end: 20121008
  6. FOLINIC ACID [Suspect]
     Indication: MALIGNANT NEOPLASM OF RECTUM
     Dosage: form- infusion
     Route: 042
     Dates: start: 20120905, end: 20121008
  7. FLUOROURACIL [Suspect]
     Indication: MALIGNANT NEOPLASM OF COLON
     Route: 065
     Dates: start: 20120905, end: 20121008
  8. FLUOROURACIL [Suspect]
     Indication: MALIGNANT NEOPLASM OF RECTUM
     Route: 065
     Dates: start: 20120905, end: 20121008
  9. IRINOTECAN [Suspect]
     Indication: MALIGNANT NEOPLASM OF COLON
     Route: 065
     Dates: start: 20120905, end: 20121008
  10. IRINOTECAN [Suspect]
     Indication: MALIGNANT NEOPLASM OF RECTUM
     Route: 065
     Dates: start: 20120905, end: 20121008
  11. IRINOTECAN [Suspect]
     Indication: MALIGNANT NEOPLASM OF COLON
     Route: 065
     Dates: start: 20120905, end: 20121008
  12. IRINOTECAN [Suspect]
     Indication: MALIGNANT NEOPLASM OF RECTUM
     Route: 065
     Dates: start: 20120905, end: 20121008
  13. ACETYLSALICYLIC ACID [Concomitant]
     Indication: ANTICOAGULANT THERAPY
     Route: 048
  14. AMLODIPINE [Concomitant]
     Indication: HYPERTENSION
     Route: 048
     Dates: end: 20121006
  15. AMLODIPINE [Concomitant]
     Indication: HYPERTENSION
     Route: 048
  16. ALLOPURINOL [Concomitant]
     Indication: PROPHYLAXIS
     Route: 048
  17. AMPHOTERICIN B [Concomitant]
     Indication: CHEMOPROPHYLAXIS NOS
     Dosage: Dose: 4 X 1 Pipette.
     Route: 048
     Dates: start: 20120921, end: 20120926
  18. PANTOPRAZOLE [Concomitant]
     Indication: PROPHYLAXIS
     Route: 048
     Dates: start: 20120921
  19. SIMVASTATIN [Concomitant]
     Route: 065
  20. AMPHOTERICIN B [Concomitant]
     Dosage: dose: 3x/d
  21. KALINOR [Concomitant]
     Dosage: dose: according to blood value
     Route: 065
  22. RAMIPRIL [Concomitant]
     Indication: HYPERTENSION
     Route: 065
     Dates: end: 20121006
  23. BISOPROLOL [Concomitant]
     Indication: HYPERTENSION
     Route: 065
     Dates: end: 20121006
  24. TORSEMIDE [Concomitant]
     Route: 065
  25. FILGRASTIM [Concomitant]
     Dosage: dose: 30 mill I.E. Paused

REACTIONS (2)
  - Ventricular fibrillation [Recovered/Resolved with Sequelae]
  - Vomiting [Recovered/Resolved]
